FAERS Safety Report 6598051-4 (Version None)
Quarter: 2010Q1

REPORT INFORMATION
  Report Type: 
  Country: None (occurrence: None)
  Receive Date: 20100223
  Receipt Date: 20100217
  Transmission Date: 20100710
  Serious: Yes (Death, Life-Threatening, Hospitalization, Other)
  Sender: FDA-Public Use
  Company Number: FR-BRISTOL-MYERS SQUIBB COMPANY-14808034

PATIENT
  Age: 54 Year
  Sex: Female
  Weight: 62 kg

DRUGS (8)
  1. IXABEPILONE [Suspect]
     Indication: BREAST CANCER
     Dosage: 70 MG TOTAL
     Route: 042
     Dates: start: 20090928, end: 20090928
  2. CYCLOPHOSPHAMIDE [Suspect]
     Indication: BREAST CANCER
     Dosage: 2610 MG TOTAL
     Route: 042
     Dates: start: 20090729, end: 20090907
  3. FLUOROURACIL [Suspect]
     Indication: BREAST CANCER
     Dosage: 2610 MG TOTAL
     Route: 042
     Dates: start: 20090729, end: 20090907
  4. EPIRUBICIN [Suspect]
     Indication: BREAST CANCER
     Dosage: 522 MG TOTAL
     Route: 042
     Dates: start: 20090729, end: 20090907
  5. NEXIUM [Concomitant]
  6. LEXOMIL [Concomitant]
  7. VOGALENE [Concomitant]
  8. ZOPHREN [Concomitant]

REACTIONS (5)
  - APLASIA [None]
  - MULTI-ORGAN FAILURE [None]
  - RENAL FAILURE [None]
  - RESPIRATORY DISTRESS [None]
  - SEPTIC SHOCK [None]
